FAERS Safety Report 6076553-7 (Version None)
Quarter: 2009Q1

REPORT INFORMATION
  Report Type: 
  Country: None (occurrence: None)
  Receive Date: 20090213
  Receipt Date: 20090206
  Transmission Date: 20090719
  Serious: Yes (Hospitalization)
  Sender: FDA-Public Use
  Company Number: GB-BRISTOL-MYERS SQUIBB COMPANY-13359088

PATIENT
  Age: 73 Year
  Sex: Female

DRUGS (1)
  1. METFORMIN HCL [Suspect]
     Indication: TYPE 2 DIABETES MELLITUS
     Dosage: 1 DOSAGE FORM=850MG OR 1G DAILY. FORMULATION: TABS
     Route: 048

REACTIONS (4)
  - DIARRHOEA [None]
  - LACTIC ACIDOSIS [None]
  - LETHARGY [None]
  - RENAL FAILURE ACUTE [None]
